FAERS Safety Report 6445195-3 (Version None)
Quarter: 2009Q4

REPORT INFORMATION
  Report Type: 
  Country: None (occurrence: None)
  Receive Date: 20091118
  Receipt Date: 20090327
  Transmission Date: 20100525
  Serious: No
  Sender: FDA-Public Use
  Company Number: US-BRISTOL-MYERS SQUIBB COMPANY-14564645

PATIENT
  Age: 59 Year
  Sex: Female
  Weight: 104 kg

DRUGS (3)
  1. GLUCOPHAGE XR [Suspect]
     Indication: DIABETES MELLITUS
     Dosage: 3 DOSAGE FORM=3 TABLETS(500MG)
     Dates: start: 20020101
  2. ASPIRIN [Concomitant]
  3. TRIAMTERENE [Concomitant]

REACTIONS (2)
  - BLOOD GLUCOSE INCREASED [None]
  - DRUG INEFFECTIVE [None]
